FAERS Safety Report 24779132 (Version 1)
Quarter: 2024Q4

REPORT INFORMATION
  Report Type: Spontaneous
  Country: US (occurrence: None)
  Receive Date: 20241226
  Receipt Date: 20241226
  Transmission Date: 20250114
  Serious: Yes (Life-Threatening, Hospitalization)
  Sender: Public
  Company Number: None

PATIENT
  Age: 75 Year
  Sex: Male

DRUGS (3)
  1. ENOXAPARIN [Suspect]
     Active Substance: ENOXAPARIN
     Indication: Deep vein thrombosis
     Dosage: FREQUENCY : TWICE A DAY;?
     Route: 058
  2. COUMADIN [Suspect]
     Active Substance: WARFARIN SODIUM
  3. APIXABAN [Suspect]
     Active Substance: APIXABAN

REACTIONS (3)
  - Therapy interrupted [None]
  - Thrombosis [None]
  - International normalised ratio decreased [None]

NARRATIVE: CASE EVENT DATE: 20241204
